FAERS Safety Report 6525415-7 (Version None)
Quarter: 2010Q1

REPORT INFORMATION
  Report Type: 
  Country: None (occurrence: None)
  Receive Date: 20100104
  Receipt Date: 20091218
  Transmission Date: 20100710
  Serious: No
  Sender: FDA-Public Use
  Company Number: US-B.I. PHARMACEUTICALS,INC./RIDGEFIELD-2009-BP-13872BP

PATIENT
  Sex: Male

DRUGS (3)
  1. SPIRIVA [Suspect]
     Indication: DYSPNOEA
     Dosage: 18 MCG
     Route: 055
     Dates: start: 20091101, end: 20091101
  2. COMBIVENT [Concomitant]
     Indication: DYSPNOEA
  3. QVAR 40 [Concomitant]
     Indication: DYSPNOEA

REACTIONS (2)
  - FOREIGN BODY SENSATION IN EYES [None]
  - VISION BLURRED [None]
